FAERS Safety Report 7635871-9 (Version None)
Quarter: 2011Q3

REPORT INFORMATION
  Report Type: 
  Country: None (occurrence: None)
  Receive Date: 20110726
  Receipt Date: 20110718
  Transmission Date: 20111222
  Serious: Yes (Hospitalization, Other)
  Sender: FDA-Public Use
  Company Number: HR-JNJFOC-20110602896

PATIENT
  Age: 25 Year
  Sex: Female

DRUGS (8)
  1. RISPERIDONE [Suspect]
     Route: 030
     Dates: start: 20070101
  2. RISPERIDONE [Suspect]
     Route: 030
     Dates: start: 20070101
  3. RISPERIDONE [Suspect]
     Indication: ACUTE PSYCHOSIS
     Route: 048
     Dates: start: 20070101
  4. RISPERIDONE [Suspect]
     Indication: MENTAL RETARDATION
     Route: 030
     Dates: start: 20101001
  5. RISPERIDONE [Suspect]
     Indication: ACUTE PSYCHOSIS
     Route: 030
     Dates: start: 20101001
  6. DIAZEPAM [Suspect]
     Indication: ACUTE PSYCHOSIS
     Route: 065
     Dates: start: 20070101
  7. RISPERIDONE [Suspect]
     Route: 030
     Dates: start: 20101001
  8. RISPERIDONE [Suspect]
     Indication: SCHIZOAFFECTIVE DISORDER
     Route: 030
     Dates: start: 20070101

REACTIONS (7)
  - ACTIVITIES OF DAILY LIVING IMPAIRED [None]
  - ANXIETY [None]
  - SCHIZOPHRENIA [None]
  - TREATMENT NONCOMPLIANCE [None]
  - MENTAL STATUS CHANGES [None]
  - DELUSION [None]
  - ABNORMAL BEHAVIOUR [None]
